FAERS Safety Report 10391910 (Version 2)
Quarter: 2014Q3

REPORT INFORMATION
  Report Type: Report from Study
  Country: MX (occurrence: MX)
  Receive Date: 20140819
  Receipt Date: 20140819
  Transmission Date: 20150326
  Serious: Yes (Other)
  Sender: FDA-Public Use
  Company Number: PHHY2014MX026783

PATIENT
  Age: 51 Year
  Sex: Male
  Weight: 105 kg

DRUGS (5)
  1. TEGRETOL [Suspect]
     Active Substance: CARBAMAZEPINE
     Indication: EPILEPSY
     Dosage: UNK UKN, UNK
     Route: 048
     Dates: start: 198201
  2. TEGRETOL [Suspect]
     Active Substance: CARBAMAZEPINE
     Indication: FEELING OF RELAXATION
     Dosage: 2 DF, DAILY
     Route: 048
  3. TEGRETOL [Suspect]
     Active Substance: CARBAMAZEPINE
     Indication: STRESS
  4. TEGRETOL [Suspect]
     Active Substance: CARBAMAZEPINE
     Indication: EPILEPSY
     Dosage: 3 DF, DAILY
     Route: 048
  5. TEGRETOL [Suspect]
     Active Substance: CARBAMAZEPINE
     Indication: OFF LABEL USE

REACTIONS (8)
  - Somnolence [Not Recovered/Not Resolved]
  - Petit mal epilepsy [Recovered/Resolved]
  - Stress [Recovered/Resolved]
  - Distractibility [Not Recovered/Not Resolved]
  - Dysphemia [Not Recovered/Not Resolved]
  - Memory impairment [Recovered/Resolved]
  - Gastrointestinal tract irritation [Not Recovered/Not Resolved]
  - Syncope [Recovered/Resolved]

NARRATIVE: CASE EVENT DATE: 20140803
